FAERS Safety Report 20703359 (Version 1)
Quarter: 2022Q2

REPORT INFORMATION
  Report Type: Spontaneous
  Country: GB (occurrence: GB)
  Receive Date: 20220413
  Receipt Date: 20220413
  Transmission Date: 20220721
  Serious: Yes (Other)
  Sender: FDA-Public Use
  Company Number: None

PATIENT
  Age: 64 Year
  Sex: Female
  Weight: 58 kg

DRUGS (6)
  1. ATORVASTATIN [Suspect]
     Active Substance: ATORVASTATIN
     Dosage: TAKE ONE DAILY
     Dates: start: 20211110, end: 20220119
  2. ATORVASTATIN [Suspect]
     Active Substance: ATORVASTATIN
     Dates: start: 20220209
  3. FYBOGEL [Concomitant]
     Active Substance: HERBALS\PLANTAGO OVATA SEED
     Dosage: ONE TWICE A DAY
     Dates: start: 20211213, end: 20211228
  4. LATANOPROST [Concomitant]
     Active Substance: LATANOPROST
     Dosage: ONE DROP ONCE DAILY
     Dates: start: 20210724
  5. SIMVASTATIN. [Concomitant]
     Dosage: TAKE ONE EACH NIGHT
     Dates: start: 20211228
  6. TERBINAFINE [Concomitant]
     Active Substance: TERBINAFINE
     Dosage: TAKE ONE DAILY
     Dates: start: 20210907

REACTIONS (2)
  - Constipation [Unknown]
  - Pain in extremity [Recovered/Resolved]

NARRATIVE: CASE EVENT DATE: 20220210
